FAERS Safety Report 7818949-6 (Version None)
Quarter: 2011Q4

REPORT INFORMATION
  Report Type: 
  Country: None (occurrence: None)
  Receive Date: 20111018
  Receipt Date: 20111006
  Transmission Date: 20120403
  Serious: Yes (Other)
  Sender: FDA-Public Use
  Company Number: BR-JNJFOC-20111003888

PATIENT
  Age: 26 Year
  Sex: Female

DRUGS (3)
  1. REMICADE [Suspect]
     Indication: PSORIASIS
     Route: 042
     Dates: start: 20091202
  2. DEXAMETHASONE [Suspect]
     Indication: OROPHARYNGEAL PAIN
     Route: 065
     Dates: start: 20110801
  3. REMICADE [Suspect]
     Dosage: USES 3 AMPULES OF INFLIXIMAB FOR INFUSION
     Route: 042
     Dates: start: 20111005

REACTIONS (6)
  - ASPARTATE AMINOTRANSFERASE ABNORMAL [None]
  - ALANINE AMINOTRANSFERASE ABNORMAL [None]
  - OROPHARYNGEAL PAIN [None]
  - RED BLOOD CELL SEDIMENTATION RATE ABNORMAL [None]
  - GAMMA-GLUTAMYLTRANSFERASE ABNORMAL [None]
  - BLOOD CHOLESTEROL ABNORMAL [None]
